FAERS Safety Report 16539261 (Version 1)
Quarter: 2019Q3

REPORT INFORMATION
  Report Type: Spontaneous
  Country: US (occurrence: US)
  Receive Date: 20190708
  Receipt Date: 20190708
  Transmission Date: 20191004
  Serious: Yes (Hospitalization)
  Sender: FDA-Public Use
  Company Number: US-ALLERGAN-1928003US

PATIENT
  Age: 18 Year
  Sex: Female

DRUGS (1)
  1. FLUOXETINE HCL UNK [Suspect]
     Active Substance: FLUOXETINE HYDROCHLORIDE
     Indication: ANOREXIA NERVOSA
     Dosage: 60 MG, QD
     Route: 065

REACTIONS (17)
  - Hypotension [Unknown]
  - Hyponatraemia [Unknown]
  - Food refusal [Unknown]
  - Malnutrition [Unknown]
  - Bradycardia [Unknown]
  - Polydipsia psychogenic [Unknown]
  - Off label use [Unknown]
  - Diabetes insipidus [Unknown]
  - Hypoglycaemia [Unknown]
  - Weight decreased [Unknown]
  - Polyuria [Recovering/Resolving]
  - Pericardial effusion [Unknown]
  - Suicidal ideation [Unknown]
  - Intentional self-injury [Unknown]
  - Asthenia [Unknown]
  - Pneumomediastinum [Unknown]
  - Lethargy [Unknown]
